FAERS Safety Report 6917486-0 (Version None)
Quarter: 2010Q3

REPORT INFORMATION
  Report Type: 
  Country: None (occurrence: None)
  Receive Date: 20100806
  Receipt Date: 20100726
  Transmission Date: 20110219
  Serious: Yes (Hospitalization)
  Sender: FDA-Public Use
  Company Number: 7012411

PATIENT
  Age: 68 Year
  Sex: Female

DRUGS (2)
  1. REBIF [Suspect]
     Indication: RELAPSING-REMITTING MULTIPLE SCLEROSIS
     Dosage: 22 MCG, 3 IN 1 WK
     Dates: start: 20080318
  2. NITROGLYCERIN [Concomitant]

REACTIONS (7)
  - AMNESIA [None]
  - ARRHYTHMIA [None]
  - COMA [None]
  - CONDITION AGGRAVATED [None]
  - LUNG DISORDER [None]
  - MULTIPLE SCLEROSIS [None]
  - PNEUMONIA [None]
